FAERS Safety Report 13345057 (Version 1)
Quarter: 2017Q1

REPORT INFORMATION
  Report Type: Spontaneous
  Country: US (occurrence: US)
  Receive Date: 20170317
  Receipt Date: 20170317
  Transmission Date: 20170428
  Serious: No
  Sender: FDA-Public Use
  Company Number: US-AUROBINDO-AUR-APL-2013-10516

PATIENT

DRUGS (4)
  1. QUETIAPINE FUMARATE TABLETS 100MG [Suspect]
     Active Substance: QUETIAPINE FUMARATE
     Indication: SLEEP DISORDER
     Dosage: 100 MG,UNK,
     Route: 065
  2. WELLBUTRIN [Concomitant]
     Active Substance: BUPROPION HYDROCHLORIDE
     Indication: PRODUCT USED FOR UNKNOWN INDICATION
     Dosage: UNK UNK,UNK,
     Route: 065
  3. QUETIAPINE FUMARATE TABLETS 100MG [Suspect]
     Active Substance: QUETIAPINE FUMARATE
     Dosage: 1 DF,TWO TIMES A DAY,
     Route: 065
  4. ADDERALL [Concomitant]
     Active Substance: AMPHETAMINE ASPARTATE\AMPHETAMINE SULFATE\DEXTROAMPHETAMINE SACCHARATE\DEXTROAMPHETAMINE SULFATE
     Indication: PRODUCT USED FOR UNKNOWN INDICATION
     Dosage: UNK UNK,UNK,
     Route: 065

REACTIONS (8)
  - Gingival recession [Unknown]
  - Alopecia [Unknown]
  - Menstrual disorder [Unknown]
  - Product use issue [Unknown]
  - Wrong technique in product usage process [Unknown]
  - Amnesia [Unknown]
  - Therapeutic response decreased [Unknown]
  - Sleep disorder [Unknown]

NARRATIVE: CASE EVENT DATE: 2012
